FAERS Safety Report 8950309 (Version 1)
Quarter: 2012Q4

REPORT INFORMATION
  Report Type: Spontaneous
  Country: US (occurrence: None)
  Receive Date: 20121130
  Receipt Date: 20121130
  Transmission Date: 20130627
  Serious: Yes (Life-Threatening, Other)
  Sender: FDA-Public Use
  Company Number: None

PATIENT
  Age: 59 Year
  Sex: Male
  Weight: 86.18 kg

DRUGS (1)
  1. ANDROGEL [Suspect]
     Indication: TESTOSTERONE LOW
     Dosage: 2 pumps once a day
     Dates: start: 20120816, end: 20121010

REACTIONS (4)
  - Breast pain [None]
  - Breast swelling [None]
  - Micturition urgency [None]
  - Dysuria [None]
